FAERS Safety Report 7468589-6 (Version None)
Quarter: 2011Q2

REPORT INFORMATION
  Report Type: 
  Country: None (occurrence: None)
  Receive Date: 20110509
  Receipt Date: 20110427
  Transmission Date: 20111010
  Serious: Yes (Hospitalization, Other)
  Sender: FDA-Public Use
  Company Number: US-BAYER-2011-036666

PATIENT
  Sex: Female

DRUGS (1)
  1. AVELOX [Suspect]
     Indication: PHARYNGITIS STREPTOCOCCAL
     Dosage: 400 MG, ONCE
     Route: 048
     Dates: start: 20110129, end: 20110129

REACTIONS (7)
  - STEVENS-JOHNSON SYNDROME [None]
  - ERYTHEMA [None]
  - SKIN BURNING SENSATION [None]
  - VOMITING [None]
  - DIARRHOEA [None]
  - DYSPNOEA [None]
  - SKIN EXFOLIATION [None]
